FAERS Safety Report 11751859 (Version 3)
Quarter: 2015Q4

REPORT INFORMATION
  Report Type: Spontaneous
  Country: HU (occurrence: HU)
  Receive Date: 20151118
  Receipt Date: 20151204
  Transmission Date: 20160304
  Serious: Yes (Other)
  Sender: FDA-Public Use
  Company Number: HU-BAYER-2015-456528

PATIENT
  Sex: Male

DRUGS (6)
  1. XOFIGO [Suspect]
     Active Substance: RADIUM RA-223 DICHLORIDE
     Indication: PROSTATE CANCER METASTATIC
     Dosage: UNK
     Route: 042
     Dates: end: 20151012
  2. XOFIGO [Suspect]
     Active Substance: RADIUM RA-223 DICHLORIDE
     Indication: PROSTATE CANCER METASTATIC
     Dosage: UNK
     Dates: start: 20150623, end: 20150623
  3. XOFIGO [Suspect]
     Active Substance: RADIUM RA-223 DICHLORIDE
     Indication: PROSTATE CANCER METASTATIC
     Dosage: UNK
     Dates: start: 20150721, end: 20150721
  4. XOFIGO [Suspect]
     Active Substance: RADIUM RA-223 DICHLORIDE
     Indication: PROSTATE CANCER METASTATIC
     Dosage: UNK
     Dates: start: 20150915, end: 20150915
  5. XOFIGO [Suspect]
     Active Substance: RADIUM RA-223 DICHLORIDE
     Indication: PROSTATE CANCER METASTATIC
     Dosage: UNK
     Dates: start: 20150818, end: 20150818
  6. ANDROCUR [Concomitant]
     Active Substance: CYPROTERONE ACETATE

REACTIONS (3)
  - Dysphonia [None]
  - Prostatic specific antigen increased [None]
  - Swollen tongue [None]

NARRATIVE: CASE EVENT DATE: 20151012
